FAERS Safety Report 9124451 (Version 2)
Quarter: 2013Q1

REPORT INFORMATION
  Report Type: Spontaneous
  Country: JP (occurrence: JP)
  Receive Date: 20130227
  Receipt Date: 20130313
  Transmission Date: 20140127
  Serious: Yes (Death, Hospitalization)
  Sender: FDA-Public Use
  Company Number: JP-OTSUKA-JP-2013-10479

PATIENT
  Age: 82 Year
  Sex: Male

DRUGS (2)
  1. PLETAAL [Suspect]
     Route: 048
  2. ASPIRIN [Concomitant]
     Route: 065

REACTIONS (4)
  - Gastrointestinal haemorrhage [Fatal]
  - Shock haemorrhagic [Fatal]
  - Cardiac failure [Unknown]
  - Anaemia [Unknown]
